FAERS Safety Report 9374982 (Version 2)
Quarter: 2013Q3

REPORT INFORMATION
  Report Type: Report from Study
  Country: US (occurrence: US)
  Receive Date: 20130628
  Receipt Date: 20130930
  Transmission Date: 20140515
  Serious: Yes (Hospitalization)
  Sender: FDA-Public Use
  Company Number: PHEH2012US014343

PATIENT
  Age: 63 Year
  Sex: Female

DRUGS (19)
  1. GLEEVEC [Suspect]
     Indication: CHRONIC MYELOID LEUKAEMIA
     Dosage: 400 MG, QD
     Route: 048
     Dates: start: 20120228, end: 20120731
  2. GLEEVEC [Interacting]
     Dosage: 400 MG DAILY
     Route: 048
     Dates: end: 20121215
  3. SIMVASTATIN [Interacting]
     Dosage: 10 MG, UNK
     Route: 048
     Dates: end: 20121218
  4. METHYLCELLULOSE [Concomitant]
     Dosage: 1 DF, QD
  5. VITAMIN D3 [Concomitant]
     Dosage: 2 DF, QD
     Route: 048
  6. CARDIZEM [Concomitant]
     Dosage: 1 DF, QD
     Route: 048
  7. ENALAPRIL MALEATE [Concomitant]
     Dosage: 1 DF, (20 MG) QD
     Route: 048
  8. SINGULAIR [Concomitant]
     Dosage: 1 DF, (10 MG) QD
     Route: 048
  9. HYDROCHLOROTHIAZIDE [Concomitant]
     Dosage: 1 DF, (25 MG) QD
     Route: 048
  10. ASPIRIN [Concomitant]
     Dosage: 1 DF, (81 MG) QD
     Route: 048
     Dates: start: 20120920
  11. PRILOSEC [Concomitant]
     Dosage: 1 DF, (20 MG) QD
     Route: 048
     Dates: start: 20120920
  12. PRAVASTATIN SODIUM [Concomitant]
     Dosage: 20 MG, UNK
     Route: 048
  13. VITAMIN D2 [Concomitant]
     Dosage: 1 DF, PER WEEK
     Route: 048
     Dates: start: 20130402
  14. KENALOG                            /00806701/ [Concomitant]
     Dosage: UNK UKN, UNK
     Dates: start: 20130801
  15. DUREZOL [Concomitant]
     Dosage: UNK UKN, UNK
  16. BROMFENAC [Concomitant]
  17. CALCIUM CARBONATE [Concomitant]
     Dosage: 1 DF, QD
     Route: 048
     Dates: end: 20130507
  18. VITAMIN D [Concomitant]
     Dosage: UNK UKN, UNK
     Dates: end: 20130507
  19. LIPITOR [Concomitant]
     Dosage: 1 DF, (20 MG) QD
     Route: 048
     Dates: end: 20120911

REACTIONS (20)
  - Hypophagia [Unknown]
  - Pain [Unknown]
  - Communication disorder [Unknown]
  - Feeling abnormal [Unknown]
  - Vomiting [Recovered/Resolved]
  - Insomnia [Unknown]
  - Drug interaction [Unknown]
  - Muscle spasms [Unknown]
  - Diarrhoea [Recovered/Resolved]
  - Dehydration [Unknown]
  - Decreased appetite [Unknown]
  - Dysphagia [Unknown]
  - Palpitations [Unknown]
  - Dyspnoea [Unknown]
  - Nausea [Unknown]
  - Asthenia [Unknown]
  - Vision blurred [Unknown]
  - Swollen tongue [Unknown]
  - Fatigue [Not Recovered/Not Resolved]
  - Myalgia [Unknown]
